FAERS Safety Report 8549461-7 (Version None)
Quarter: 2012Q3

REPORT INFORMATION
  Report Type: 
  Country: None (occurrence: None)
  Receive Date: 20120730
  Receipt Date: 20120725
  Transmission Date: 20120928
  Serious: Yes (Death)
  Sender: FDA-Public Use
  Company Number: US-ROCHE-1090026

PATIENT
  Sex: Female
  Weight: 88.53 kg

DRUGS (15)
  1. EPIPEN [Concomitant]
     Indication: PROPHYLAXIS
     Dosage: DOSE 0.3MG/0.3 ML
     Route: 030
  2. KLONOPIN [Concomitant]
     Dosage: DOSE 1-2 DF
  3. PREDNISONE [Concomitant]
     Dosage: TAPER AS DIRECTED
  4. PULMICORT FLEXHALER [Concomitant]
     Dosage: 1 PUFF TWICE DAILY
  5. CYMBALTA [Concomitant]
     Route: 048
  6. GEODON [Concomitant]
     Route: 048
  7. SINGULAIR [Concomitant]
     Route: 048
  8. DILAUDID [Concomitant]
     Indication: PAIN
     Dosage: DOSE 1-2 DF
     Route: 048
  9. ALBUTEROL SULFATE [Concomitant]
     Dosage: DOSE 2.5 MG/3ML
  10. PROVENTIL [Concomitant]
     Route: 048
  11. XOLAIR [Suspect]
     Indication: PRODUCT USED FOR UNKNOWN INDICATION
     Route: 058
     Dates: start: 20120709
  12. ZANAFLEX [Concomitant]
     Dosage: TAKE 2 DF
     Route: 048
  13. DURAGESIC-100 [Concomitant]
     Dosage: 1 PATCH/3 DAY
  14. PROAIR HFA [Concomitant]
     Dosage: DOSE 1-2 PUFFS AS NEEDED
  15. ZITHROMAX [Concomitant]

REACTIONS (1)
  - STATUS ASTHMATICUS [None]
